FAERS Safety Report 8077440-5 (Version None)
Quarter: 2012Q1

REPORT INFORMATION
  Report Type: 
  Country: None (occurrence: None)
  Receive Date: 20120127
  Receipt Date: 20120113
  Transmission Date: 20120608
  Serious: Yes (Other)
  Sender: FDA-Public Use
  Company Number: PHHY2011JP113020

PATIENT
  Sex: Female

DRUGS (4)
  1. CYCLOSPORINE [Suspect]
  2. IMMUNE GLOBULIN NOS [Concomitant]
     Dosage: 1 G/KG, UNK
     Route: 042
  3. IMMUNE GLOBULIN NOS [Concomitant]
     Dosage: 2 G/KG, UNK
     Route: 042
  4. IMMUNE GLOBULIN NOS [Concomitant]
     Dosage: 2 G/KG, UNK
     Route: 042

REACTIONS (4)
  - INTERLEUKIN LEVEL INCREASED [None]
  - INFLAMMATION [None]
  - PYREXIA [None]
  - SKIN EXFOLIATION [None]
